FAERS Safety Report 21845511 (Version 4)
Quarter: 2024Q1

REPORT INFORMATION
  Report Type: Report from Study
  Country: JP (occurrence: JP)
  Receive Date: 20230111
  Receipt Date: 20240201
  Transmission Date: 20240409
  Serious: Yes (Death, Hospitalization, Other)
  Sender: FDA-Public Use
  Company Number: JP-ONO-2023JP000499

PATIENT
  Age: 66 Year
  Sex: Female

DRUGS (3)
  1. OPDIVO [Suspect]
     Active Substance: NIVOLUMAB
     Indication: Transitional cell carcinoma
     Route: 041
     Dates: start: 20220913, end: 20220913
  2. PIPERACILLIN SODIUM\TAZOBACTAM SODIUM [Concomitant]
     Active Substance: PIPERACILLIN SODIUM\TAZOBACTAM SODIUM
     Indication: Product used for unknown indication
     Route: 042
  3. ZOMETA [Concomitant]
     Active Substance: ZOLEDRONIC ACID
     Indication: Product used for unknown indication

REACTIONS (10)
  - Cytokine storm [Fatal]
  - White blood cell count increased [Fatal]
  - Malignant neoplasm progression [Fatal]
  - Neoplasm [Fatal]
  - General physical health deterioration [Unknown]
  - Depressed level of consciousness [Unknown]
  - Infection [Unknown]
  - Glossoptosis [Unknown]
  - Tumour pain [Unknown]
  - Transitional cell carcinoma metastatic [Unknown]

NARRATIVE: CASE EVENT DATE: 20220928
